FAERS Safety Report 7534576-2 (Version None)
Quarter: 2011Q2

REPORT INFORMATION
  Report Type: 
  Country: None (occurrence: None)
  Receive Date: 20110609
  Receipt Date: 20090724
  Transmission Date: 20111010
  Serious: Yes (Death, Other)
  Sender: FDA-Public Use
  Company Number: PHHY2009JP23577

PATIENT
  Sex: Male

DRUGS (7)
  1. METHYCOBAL [Concomitant]
     Dosage: 1500 UG, UNK
     Route: 048
     Dates: start: 20081001
  2. JUVELA NICOTINATE [Concomitant]
     Dosage: 300 MG, UNK
     Route: 048
     Dates: start: 20090114
  3. FAMOTIDINE [Concomitant]
     Dosage: 40 MG, UNK
     Route: 048
  4. CARBIDOPA + LEVODOPA [Concomitant]
     Dosage: 600 MG, UNK
     Route: 048
     Dates: end: 20090309
  5. ENTACAPONE [Suspect]
     Indication: DRUG EFFECT DECREASED
     Dosage: 100 MG, DAILY
     Route: 048
     Dates: start: 20081203, end: 20081203
  6. CARBIDOPA + LEVODOPA [Concomitant]
     Indication: PARKINSON'S DISEASE
     Dosage: 550 MG, UNK
     Route: 048
     Dates: start: 20080820
  7. URINORM [Concomitant]
     Dosage: 50 MG, UNK
     Route: 048

REACTIONS (9)
  - BLOOD ALKALINE PHOSPHATASE INCREASED [None]
  - DEPRESSED LEVEL OF CONSCIOUSNESS [None]
  - PNEUMONIA [None]
  - PYREXIA [None]
  - WHITE BLOOD CELL COUNT ABNORMAL [None]
  - C-REACTIVE PROTEIN INCREASED [None]
  - DYSPNOEA [None]
  - COUGH [None]
  - ASTHENIA [None]
